FAERS Safety Report 12931042 (Version 1)
Quarter: 2016Q4

REPORT INFORMATION
  Report Type: Spontaneous
  Country: US (occurrence: US)
  Receive Date: 20161110
  Receipt Date: 20161110
  Transmission Date: 20170207
  Serious: No
  Sender: FDA-Public Use
  Company Number: GXBR2016US000477

PATIENT

DRUGS (1)
  1. BACITRACIN ZINC. [Suspect]
     Active Substance: BACITRACIN ZINC
     Indication: EPISTAXIS
     Dosage: UNK DF, UNK
     Route: 061

REACTIONS (1)
  - Product use issue [Not Recovered/Not Resolved]
